FAERS Safety Report 25284304 (Version 1)
Quarter: 2025Q2

REPORT INFORMATION
  Report Type: Spontaneous
  Country: US (occurrence: US)
  Receive Date: 20250508
  Receipt Date: 20250508
  Transmission Date: 20250717
  Serious: No
  Sender: VERTEX
  Company Number: US-VERTEX PHARMACEUTICALS-2025-006947

PATIENT
  Sex: Female

DRUGS (2)
  1. SUZETRIGINE [Suspect]
     Active Substance: SUZETRIGINE
     Indication: Pain
     Route: 048
  2. BUTRANS [Concomitant]
     Active Substance: BUPRENORPHINE
     Indication: Back pain

REACTIONS (1)
  - Euphoric mood [Recovered/Resolved]
